FAERS Safety Report 9436556 (Version 1)
Quarter: 2013Q3

REPORT INFORMATION
  Report Type: Spontaneous
  Country: US (occurrence: US)
  Receive Date: 20130802
  Receipt Date: 20130802
  Transmission Date: 20140515
  Serious: No
  Sender: FDA-Public Use
  Company Number: US-OPTIMER-20130175

PATIENT
  Age: 73 Year
  Sex: Male

DRUGS (5)
  1. FIDAXOMICIN [Suspect]
     Indication: CLOSTRIDIUM DIFFICILE COLITIS
     Dosage: UNK
     Dates: start: 20120928, end: 20121004
  2. DORIPENEM [Concomitant]
     Dosage: UNK
     Dates: start: 20120928, end: 20121003
  3. VANCOMYCIN [Concomitant]
     Dosage: UNK
     Dates: start: 20120928, end: 20121002
  4. BUSULFAN [Concomitant]
     Indication: CHEMOTHERAPY
  5. ETOPOSIDE [Concomitant]
     Indication: CHEMOTHERAPY

REACTIONS (1)
  - Neutrophil count decreased [Unknown]
